FAERS Safety Report 8565197-0 (Version None)
Quarter: 2012Q3

REPORT INFORMATION
  Report Type: 
  Country: None (occurrence: None)
  Receive Date: 20120803
  Receipt Date: 20120724
  Transmission Date: 20120928
  Serious: Yes (Hospitalization)
  Sender: FDA-Public Use
  Company Number: US-GLAXOSMITHKLINE-A0981715A

PATIENT
  Age: 63 Year
  Sex: Male

DRUGS (1)
  1. FLOLAN [Suspect]
     Dosage: 21NGKM CONTINUOUS
     Route: 042
     Dates: start: 20090319

REACTIONS (8)
  - LOCALISED OEDEMA [None]
  - DIARRHOEA [None]
  - OEDEMA PERIPHERAL [None]
  - OEDEMA [None]
  - FLUSHING [None]
  - SWELLING FACE [None]
  - PAIN IN JAW [None]
  - DECREASED APPETITE [None]
